FAERS Safety Report 7210113-7 (Version None)
Quarter: 2011Q1

REPORT INFORMATION
  Report Type: 
  Country: None (occurrence: None)
  Receive Date: 20110105
  Receipt Date: 20101222
  Transmission Date: 20110831
  Serious: Yes (Congenital Anomaly, Other)
  Sender: FDA-Public Use
  Company Number: CH-MERCK-1012USA03584

PATIENT
  Sex: Female
  Weight: 4 kg

DRUGS (4)
  1. MONURIL [Suspect]
     Indication: URINARY TRACT INFECTION
     Route: 065
     Dates: start: 20100113, end: 20100113
  2. NOPIL [Suspect]
     Indication: URINARY TRACT INFECTION
     Route: 065
     Dates: start: 20100106, end: 20100113
  3. NOROXIN [Suspect]
     Indication: URINARY TRACT INFECTION
     Route: 065
     Dates: start: 20100120, end: 20100123
  4. CLOTRIMAZOLE [Suspect]
     Route: 065
     Dates: start: 20100113, end: 20100123

REACTIONS (6)
  - DRUG EXPOSURE DURING PREGNANCY [None]
  - PULMONARY ARTERY STENOSIS CONGENITAL [None]
  - POLYCYTHAEMIA [None]
  - JAUNDICE NEONATAL [None]
  - MATERNAL DRUGS AFFECTING FOETUS [None]
  - CAESAREAN SECTION [None]
